FAERS Safety Report 20499054 (Version 4)
Quarter: 2022Q3

REPORT INFORMATION
  Report Type: Spontaneous
  Country: US (occurrence: US)
  Receive Date: 20220222
  Receipt Date: 20220911
  Transmission Date: 20221027
  Serious: No
  Sender: FDA-Public Use
  Company Number: US-SA-SAC20220215000991

PATIENT
  Age: 57 Year
  Sex: Female

DRUGS (2)
  1. DUPIXENT [Suspect]
     Active Substance: DUPILUMAB
     Indication: Asthma
     Dosage: 200 MG, QOW
     Route: 058
     Dates: start: 20200718
  2. ALBUTEROL [Concomitant]
     Active Substance: ALBUTEROL

REACTIONS (8)
  - Mental status changes [Unknown]
  - Malaise [Unknown]
  - COVID-19 [Recovered/Resolved]
  - Anxiety [Unknown]
  - Depressed mood [Unknown]
  - Somnolence [Unknown]
  - Urticaria [Not Recovered/Not Resolved]
  - Rash [Unknown]
